FAERS Safety Report 5500938-8 (Version None)
Quarter: 2007Q4

REPORT INFORMATION
  Report Type: 
  Country: None (occurrence: None)
  Receive Date: 20071029
  Receipt Date: 20071023
  Transmission Date: 20080405
  Serious: Yes (Death)
  Sender: FDA-Public Use
  Company Number: PHBS2007PH12518

PATIENT
  Age: 72 Year
  Sex: Male
  Weight: 63 kg

DRUGS (5)
  1. DOXYCYCLINE [Concomitant]
     Route: 065
  2. DIOVAN HCT [Suspect]
     Indication: HYPERTENSION
     Dosage: 80 MG/12.5 MG/D
     Route: 048
     Dates: start: 20070624
  3. BAMBUTEROL [Concomitant]
     Route: 065
  4. FISH OIL [Concomitant]
     Route: 065
  5. VITAMINS [Concomitant]
     Route: 065

REACTIONS (1)
  - DEATH [None]
